FAERS Safety Report 8555050-0 (Version None)
Quarter: 2012Q3

REPORT INFORMATION
  Report Type: 
  Country: None (occurrence: None)
  Receive Date: 20120731
  Receipt Date: 20120724
  Transmission Date: 20120928
  Serious: Yes (Death, Hospitalization)
  Sender: FDA-Public Use
  Company Number: US-CELGENEUS-163-21880-12072037

PATIENT
  Age: 40 Year
  Sex: Female
  Weight: 96.2 kg

DRUGS (7)
  1. IDARUBICIN HCL [Suspect]
     Dosage: 8 MILLIGRAM/SQ. METER
     Route: 041
     Dates: start: 20120619, end: 20120625
  2. AMIODARONE HCL [Concomitant]
     Indication: ATRIAL FLUTTER
     Route: 065
     Dates: start: 20120701
  3. CYTARABINE [Suspect]
     Dosage: 1.0G/M2
     Route: 041
     Dates: start: 20120619, end: 20120625
  4. REVLIMID [Suspect]
     Dosage: 30 MILLIGRAM
     Route: 048
     Dates: start: 20120619, end: 20120704
  5. ANTIBIOTICS [Concomitant]
  6. LABETALOL HCL [Concomitant]
     Route: 065
     Dates: start: 20120701
  7. ANTIBIOTICS [Concomitant]
     Route: 065
     Dates: start: 20120701

REACTIONS (2)
  - SEPSIS [None]
  - LEFT VENTRICULAR DYSFUNCTION [None]
